FAERS Safety Report 8564489-9 (Version None)
Quarter: 2012Q3

REPORT INFORMATION
  Report Type: 
  Country: None (occurrence: None)
  Receive Date: 20120803
  Receipt Date: 20120731
  Transmission Date: 20120928
  Serious: Yes (Other)
  Sender: FDA-Public Use
  Company Number: US-PFIZER INC-2012186215

PATIENT
  Sex: Female
  Weight: 52 kg

DRUGS (1)
  1. CELEBREX [Suspect]
     Indication: POLYARTHRITIS
     Dosage: 200 MG, 1X/DAY
     Route: 048

REACTIONS (3)
  - SYNOVIAL CYST [None]
  - RENAL DISORDER [None]
  - BLOOD PRESSURE INCREASED [None]
